FAERS Safety Report 5504192-2 (Version None)
Quarter: 2007Q4

REPORT INFORMATION
  Report Type: 
  Country: None (occurrence: None)
  Receive Date: 20071101
  Receipt Date: 20071025
  Transmission Date: 20080405
  Serious: Yes (Hospitalization)
  Sender: FDA-Public Use
  Company Number: B0489254A

PATIENT
  Age: 43 Year
  Sex: Male
  Weight: 62.1 kg

DRUGS (7)
  1. VALTREX [Suspect]
     Indication: HERPES ZOSTER
     Dosage: 1000MG THREE TIMES PER DAY
     Route: 048
     Dates: start: 20070915, end: 20070921
  2. VOLTAREN [Concomitant]
     Indication: HERPES ZOSTER
     Dosage: 75MG PER DAY
     Route: 048
     Dates: start: 20070919, end: 20070921
  3. SELBEX [Concomitant]
     Dosage: 1.5G PER DAY
     Route: 048
     Dates: start: 20070920, end: 20070921
  4. GANATON [Concomitant]
     Indication: NAUSEA
     Dosage: 150MG PER DAY
     Route: 048
     Dates: start: 20070920, end: 20070921
  5. UNKNOWN DRUG [Concomitant]
     Indication: HYPOTENSION
     Dosage: 20MG PER DAY
     Route: 048
     Dates: start: 20070920, end: 20070921
  6. GENTACIN [Concomitant]
     Indication: RASH
     Route: 061
  7. UNKNOWN DRUG [Concomitant]
     Indication: RASH
     Route: 061

REACTIONS (12)
  - AGITATION [None]
  - DIZZINESS [None]
  - HEADACHE [None]
  - MASKED FACIES [None]
  - MENTAL STATUS CHANGES [None]
  - NAUSEA [None]
  - RENAL FAILURE ACUTE [None]
  - RENAL IMPAIRMENT [None]
  - URINE OUTPUT DECREASED [None]
  - VERTIGO [None]
  - VOMITING [None]
  - WEIGHT INCREASED [None]
